FAERS Safety Report 8114295-4 (Version None)
Quarter: 2012Q1

REPORT INFORMATION
  Report Type: 
  Country: None (occurrence: None)
  Receive Date: 20120206
  Receipt Date: 20120126
  Transmission Date: 20120608
  Serious: Yes (Hospitalization)
  Sender: FDA-Public Use
  Company Number: US-BIOGENIDEC-2012BI001085

PATIENT
  Age: 62 Year
  Sex: Female
  Weight: 79 kg

DRUGS (14)
  1. VIVELLE [Concomitant]
  2. IMITREX [Concomitant]
  3. WELLBUTRIN XL [Concomitant]
  4. FLOVENT [Concomitant]
  5. ACETAMINOPHEN [Concomitant]
  6. HYDROCHLORTHIAZIDE [Concomitant]
  7. DICLOFENAC [Concomitant]
  8. GLUCOSAMINE CHONDROITIN [Concomitant]
  9. AVONEX [Suspect]
     Indication: MULTIPLE SCLEROSIS
     Route: 030
     Dates: start: 20001218
  10. LISINOPRIL [Concomitant]
  11. AMBIEN [Concomitant]
  12. CALCIUM [Concomitant]
  13. DIAZEPAM [Concomitant]
  14. CALCIUM CARBONATE [Concomitant]

REACTIONS (7)
  - INFECTION [None]
  - GAIT DISTURBANCE [None]
  - KNEE ARTHROPLASTY [None]
  - STRESS [None]
  - ANXIETY [None]
  - ARTHRALGIA [None]
  - CONFUSIONAL STATE [None]
